APPROVED DRUG PRODUCT: DIFFERIN
Active Ingredient: ADAPALENE
Strength: 0.3%
Dosage Form/Route: GEL;TOPICAL
Application: N021753 | Product #001 | TE Code: AB
Applicant: GALDERMA LABORATORIES LP
Approved: Jun 19, 2007 | RLD: Yes | RS: Yes | Type: RX